FAERS Safety Report 15066937 (Version 1)
Quarter: 2018Q2

REPORT INFORMATION
  Report Type: Spontaneous
  Country: US (occurrence: US)
  Receive Date: 20180626
  Receipt Date: 20180626
  Transmission Date: 20180711
  Serious: No
  Sender: FDA-Public Use
  Company Number: US-MYLANLABS-2018M1042948

PATIENT
  Sex: Female

DRUGS (1)
  1. CLARITHROMYCIN. [Suspect]
     Active Substance: CLARITHROMYCIN
     Indication: PRODUCT USED FOR UNKNOWN INDICATION
     Dosage: UNK

REACTIONS (5)
  - Erythema [Unknown]
  - Lip swelling [Unknown]
  - Pruritus [Unknown]
  - Hypersensitivity [Unknown]
  - Eye swelling [Unknown]

NARRATIVE: CASE EVENT DATE: 20180602
